FAERS Safety Report 5271755-1 (Version None)
Quarter: 2007Q1

REPORT INFORMATION
  Report Type: 
  Country: None (occurrence: None)
  Receive Date: 20070316
  Receipt Date: 20070308
  Transmission Date: 20070707
  Serious: Yes (Other)
  Sender: FDA-Public Use
  Company Number: 237948

PATIENT
  Age: 42 Year
  Sex: Female

DRUGS (1)
  1. HERCEPTIN [Suspect]
     Indication: BREAST CANCER
     Dosage: 330 MG, Q3W, INTRAVENOUS
     Route: 042
     Dates: start: 20060601

REACTIONS (1)
  - MITRAL VALVE INCOMPETENCE [None]
